FAERS Safety Report 8916589 (Version 1)
Quarter: 2012Q4

REPORT INFORMATION
  Report Type: 
  Country: SE (occurrence: SE)
  Receive Date: 20121120
  Receipt Date: 20121120
  Transmission Date: 20130627
  Serious: Yes (Other)
  Sender: FDA-Public Use
  Company Number: SE-NAPPMUNDI-GBR-2012-0012101

PATIENT
  Sex: Male

DRUGS (1)
  1. OXYCONTIN DEPOT [Suspect]
     Indication: PAIN
     Dosage: UNK
     Route: 065
     Dates: end: 20111213

REACTIONS (1)
  - Hepatic cirrhosis [Unknown]
